FAERS Safety Report 18538417 (Version 1)
Quarter: 2020Q4

REPORT INFORMATION
  Report Type: Spontaneous
  Country: GB (occurrence: GB)
  Receive Date: 20201124
  Receipt Date: 20201124
  Transmission Date: 20210114
  Serious: Yes (Hospitalization, Other)
  Sender: FDA-Public Use
  Company Number: GB-AUROBINDO-AUR-APL-2011-00006

PATIENT
  Age: 68 Year
  Sex: Female

DRUGS (1)
  1. PARACETAMOL [Suspect]
     Active Substance: ACETAMINOPHEN
     Indication: PRODUCT USED FOR UNKNOWN INDICATION
     Dosage: 25 GRAM
     Route: 065

REACTIONS (14)
  - Hypotension [Unknown]
  - Ventricular hypokinesia [Recovered/Resolved]
  - Electrocardiogram T wave inversion [Unknown]
  - Hypokinesia [Recovered/Resolved]
  - Toxicity to various agents [Unknown]
  - Troponin T increased [Unknown]
  - Coronary artery disease [Unknown]
  - Electrocardiogram ST segment elevation [Recovered/Resolved]
  - Cardiotoxicity [Unknown]
  - Left ventricular failure [Recovered/Resolved]
  - Heart injury [Unknown]
  - Blood creatine phosphokinase increased [Unknown]
  - Overdose [Unknown]
  - Myocardial necrosis [Unknown]
